FAERS Safety Report 7207500-X (Version None)
Quarter: 2011Q1

REPORT INFORMATION
  Report Type: 
  Country: None (occurrence: None)
  Receive Date: 20110103
  Receipt Date: 20101227
  Transmission Date: 20110831
  Serious: Yes (Other)
  Sender: FDA-Public Use
  Company Number: NL-ABBOTT-10P-114-0687126-00

PATIENT
  Sex: Female

DRUGS (1)
  1. LUCRIN DEPOT 11.25 MG [Suspect]
     Indication: BREAST CANCER
     Route: 058
     Dates: start: 20061213

REACTIONS (9)
  - HOT FLUSH [None]
  - FATIGUE [None]
  - BREAST INFLAMMATION [None]
  - MOOD SWINGS [None]
  - INJECTION SITE REACTION [None]
  - INSOMNIA [None]
  - DYSPNOEA [None]
  - BREAST RECONSTRUCTION [None]
  - WEIGHT INCREASED [None]
